FAERS Safety Report 7631457-0 (Version None)
Quarter: 2011Q3

REPORT INFORMATION
  Report Type: 
  Country: None (occurrence: None)
  Receive Date: 20110725
  Receipt Date: 20110712
  Transmission Date: 20111222
  Serious: Yes (Other)
  Sender: FDA-Public Use
  Company Number: CA-ELI_LILLY_AND_COMPANY-CA201106006129

PATIENT
  Sex: Male

DRUGS (7)
  1. CYMBALTA [Suspect]
     Indication: DEPRESSION
     Dosage: 30 MG, UNK
     Dates: end: 20110705
  2. TYLENOL W/ CODEINE NO. 3 [Concomitant]
  3. ALCOHOL [Concomitant]
  4. CALCIUM CARBONATE [Concomitant]
     Indication: OSTEOPOROSIS
  5. VALIUM [Concomitant]
  6. TYLENOL (CAPLET) [Concomitant]
  7. DIAZEPAM [Concomitant]

REACTIONS (16)
  - ACNE [None]
  - PARAESTHESIA [None]
  - ANGER [None]
  - HALLUCINATION [None]
  - LOSS OF CONSCIOUSNESS [None]
  - HEADACHE [None]
  - DIZZINESS [None]
  - HEART RATE INCREASED [None]
  - ABDOMINAL PAIN UPPER [None]
  - CONFUSIONAL STATE [None]
  - FLASHBACK [None]
  - HOMICIDAL IDEATION [None]
  - NEURALGIA [None]
  - FEELING ABNORMAL [None]
  - INTENTIONAL DRUG MISUSE [None]
  - RESTLESSNESS [None]
